FAERS Safety Report 16277478 (Version 1)
Quarter: 2019Q2

REPORT INFORMATION
  Report Type: Spontaneous
  Country: US (occurrence: US)
  Receive Date: 20190506
  Receipt Date: 20190506
  Transmission Date: 20190711
  Serious: No
  Sender: FDA-Public Use
  Company Number: US-BAYER-2019-088664

PATIENT
  Sex: Female

DRUGS (2)
  1. STIVARGA [Suspect]
     Active Substance: REGORAFENIB
  2. ANTIHISTAMINE ALLERGY RELIEF [Concomitant]
     Dosage: UNK

REACTIONS (4)
  - Dyspnoea [None]
  - Diarrhoea [None]
  - Hypersomnia [None]
  - Malaise [None]
